FAERS Safety Report 18379465 (Version 2)
Quarter: 2020Q4

REPORT INFORMATION
  Report Type: Spontaneous
  Country: JP (occurrence: JP)
  Receive Date: 20201013
  Receipt Date: 20201019
  Transmission Date: 20210114
  Serious: Yes (Death, Other)
  Sender: FDA-Public Use
  Company Number: JP-JAZZ-2020-JP-013341

PATIENT
  Age: 18 Year
  Sex: Male
  Weight: 75.6 kg

DRUGS (2)
  1. DEFITELIO [Suspect]
     Active Substance: DEFIBROTIDE SODIUM
     Indication: VENOOCCLUSIVE LIVER DISEASE
     Dosage: 25 MILLIGRAM/KILOGRAM/24 HOURS
     Route: 042
     Dates: start: 20200815, end: 20200918
  2. DEFITELIO [Suspect]
     Active Substance: DEFIBROTIDE SODIUM
     Dosage: 25 MILLIGRAM/KILOGRAM/24 HOURS
     Route: 042
     Dates: start: 20200919, end: 20201004

REACTIONS (5)
  - Sepsis [Fatal]
  - Hepatic function abnormal [Fatal]
  - Gastric haemorrhage [Fatal]
  - Multiple organ dysfunction syndrome [Unknown]
  - Emphysema [Fatal]

NARRATIVE: CASE EVENT DATE: 20200907
